FAERS Safety Report 5390765-7 (Version None)
Quarter: 2007Q3

REPORT INFORMATION
  Report Type: 
  Country: None (occurrence: None)
  Receive Date: 20070716
  Receipt Date: 20040709
  Transmission Date: 20080115
  Serious: No
  Sender: FDA-Public Use
  Company Number: MPS1-10255

PATIENT
  Age: 17 Month
  Sex: Male
  Weight: 12 kg

DRUGS (1)
  1. ALDURAZYME [Suspect]
     Indication: MUCOPOLYSACCHARIDOSIS I
     Dosage: 100 U/KG QWK IV
     Route: 042
     Dates: start: 20031107, end: 20040706

REACTIONS (1)
  - BONE MARROW FAILURE [None]
